FAERS Safety Report 17352567 (Version 4)
Quarter: 2021Q4

REPORT INFORMATION
  Report Type: Report from Study
  Country: JP (occurrence: JP)
  Receive Date: 20200131
  Receipt Date: 20211227
  Transmission Date: 20220304
  Serious: Yes (Other)
  Sender: FDA-Public Use
  Company Number: JP-ALEXION PHARMACEUTICALS INC.-A202000838

PATIENT
  Age: 70 Year
  Sex: Male
  Weight: 111 kg

DRUGS (17)
  1. SOLIRIS [Suspect]
     Active Substance: ECULIZUMAB
     Indication: Myasthenia gravis
     Dosage: 900 MG, QW
     Route: 042
     Dates: start: 20190311, end: 20190401
  2. SOLIRIS [Suspect]
     Active Substance: ECULIZUMAB
     Dosage: 1200 MG, Q2W
     Route: 042
     Dates: start: 20190408
  3. PREDONINE                          /00016201/ [Concomitant]
     Indication: Myasthenia gravis
     Dosage: 17.5 MG, QD
     Route: 048
     Dates: end: 20190325
  4. PREDONINE                          /00016201/ [Concomitant]
     Dosage: 15 MG, QD
     Route: 048
     Dates: start: 20190326, end: 20190408
  5. PREDONINE                          /00016201/ [Concomitant]
     Dosage: 13 MG, QD
     Route: 048
     Dates: start: 20190409, end: 20190422
  6. PREDONINE                          /00016201/ [Concomitant]
     Dosage: 12 MG, QD
     Route: 048
     Dates: start: 20190423, end: 20190507
  7. PREDONINE                          /00016201/ [Concomitant]
     Dosage: 11 MG, QD
     Route: 048
     Dates: start: 20190508, end: 20190603
  8. PREDONINE                          /00016201/ [Concomitant]
     Dosage: 10 MG, QD
     Route: 048
     Dates: start: 20190604, end: 20190716
  9. PREDONINE                          /00016201/ [Concomitant]
     Dosage: 8 MG, QD
     Route: 048
     Dates: start: 20190717, end: 20190813
  10. PREDONINE                          /00016201/ [Concomitant]
     Dosage: 7 MG, QD
     Route: 048
     Dates: start: 20190814
  11. PREDONINE                          /00016201/ [Concomitant]
     Dosage: 8 MG, QD
     Route: 048
     Dates: start: 20190909, end: 20191007
  12. PREDONINE                          /00016201/ [Concomitant]
     Dosage: 10 MG, QD
     Route: 048
     Dates: start: 20191007
  13. IMURAN                             /00001501/ [Concomitant]
     Indication: Myasthenia gravis
     Dosage: 100 MG, QD
     Route: 048
  14. ROSUVASTATIN [Concomitant]
     Active Substance: ROSUVASTATIN
     Indication: Dyslipidaemia
     Dosage: 5 MG, QD
     Route: 048
  15. METHYLCOBALAMIN [Concomitant]
     Active Substance: METHYLCOBALAMIN
     Indication: Nervous system disorder
     Dosage: 500 ?G, TID
     Route: 048
  16. BONALON [Concomitant]
     Active Substance: ALENDRONATE SODIUM
     Indication: Prophylaxis
     Dosage: 35 MG, QW
     Route: 048
     Dates: start: 20190604
  17. LEVOFLOXACIN [Concomitant]
     Active Substance: LEVOFLOXACIN
     Indication: Prophylaxis
     Dosage: 500 MG, QD
     Route: 048
     Dates: start: 20200225

REACTIONS (5)
  - Arrhythmia [Recovering/Resolving]
  - Myasthenia gravis [Recovered/Resolved]
  - Faeces soft [Unknown]
  - Pain [Recovering/Resolving]
  - Hypoaesthesia [Unknown]

NARRATIVE: CASE EVENT DATE: 20190601
